FAERS Safety Report 9168110 (Version 1)
Quarter: 2013Q1

REPORT INFORMATION
  Report Type: Spontaneous
  Country: US (occurrence: US)
  Receive Date: 20130318
  Receipt Date: 20130318
  Transmission Date: 20140127
  Serious: No
  Sender: FDA-Public Use
  Company Number: US-VERTEX PHARMACEUTICALS INC.-2013-003642

PATIENT
  Age: 54 None
  Sex: Female
  Weight: 95 kg

DRUGS (7)
  1. INCIVEK [Suspect]
     Indication: HEPATITIS C
     Dosage: 750 MG, TID
     Route: 048
     Dates: start: 20130228
  2. COPEGUS [Suspect]
     Indication: HEPATITIS C
     Dosage: 400 MG, TID
     Route: 048
     Dates: start: 20130228
  3. COPEGUS [Suspect]
     Dosage: 200 MG, TID
     Route: 048
     Dates: start: 20130312
  4. PEGASYS [Suspect]
     Indication: HEPATITIS C
     Dosage: 180 ?G, QW
     Route: 058
     Dates: start: 20130228
  5. CELEXA                             /00582602/ [Concomitant]
     Indication: DEPRESSION
     Dosage: 40 MG, QD
     Route: 048
  6. SEROQUEL [Concomitant]
     Indication: SOMNOLENCE
     Dosage: 100 - 150 MG
     Route: 048
  7. METHADONE [Concomitant]
     Dosage: 20 MG, QD
     Route: 048

REACTIONS (3)
  - Red blood cell count decreased [Not Recovered/Not Resolved]
  - Proctalgia [Not Recovered/Not Resolved]
  - Anorectal discomfort [Not Recovered/Not Resolved]
